FAERS Safety Report 17702445 (Version 4)
Quarter: 2021Q2

REPORT INFORMATION
  Report Type: Spontaneous
  Country: DE (occurrence: DE)
  Receive Date: 20200423
  Receipt Date: 20210402
  Transmission Date: 20210716
  Serious: Yes (Other)
  Sender: FDA-Public Use
  Company Number: NVSC2020DE107737

PATIENT
  Sex: Female
  Weight: 99 kg

DRUGS (14)
  1. CANDESARTAN. [Concomitant]
     Active Substance: CANDESARTAN
     Indication: PRODUCT USED FOR UNKNOWN INDICATION
     Dosage: 32 MG,QD (TWICE DAILY (IN THE MORNING AND IN THE EVENING)
     Route: 065
  2. AMLODIPINE [Concomitant]
     Active Substance: AMLODIPINE BESYLATE
     Indication: PRODUCT USED FOR UNKNOWN INDICATION
     Dosage: 10 MG, QD (ONCE DAILY IN THE MORNING)
     Route: 065
     Dates: start: 2017
  3. VALSARTAN DURA [Suspect]
     Active Substance: VALSARTAN
     Dosage: 160 MG, QD (80 MG, BID (2 X DAILY) (ONCE IN MORNING AND ONCE IN EVENING))
     Route: 048
     Dates: end: 2019
  4. SYMBICORT [Concomitant]
     Active Substance: BUDESONIDE\FORMOTEROL FUMARATE DIHYDRATE
     Indication: PRODUCT USED FOR UNKNOWN INDICATION
     Dosage: UNK (UNK, 160/4.5UG120E)
     Route: 065
     Dates: start: 2018
  5. DOXAGAMMA [Concomitant]
     Active Substance: DOXAZOSIN MESYLATE
     Indication: PRODUCT USED FOR UNKNOWN INDICATION
     Dosage: UNK
     Route: 065
     Dates: start: 2017
  6. VALSARTAN. [Suspect]
     Active Substance: VALSARTAN
     Indication: PRODUCT USED FOR UNKNOWN INDICATION
     Dosage: UNK MG
     Route: 065
     Dates: start: 2017
  7. VALSARTAN DURA [Suspect]
     Active Substance: VALSARTAN
     Indication: PRODUCT USED FOR UNKNOWN INDICATION
     Dosage: UNK
     Route: 065
     Dates: start: 2018
  8. TORASEMID AL [Concomitant]
     Active Substance: TORSEMIDE
     Indication: PRODUCT USED FOR UNKNOWN INDICATION
     Dosage: 10 MG, QD
     Route: 065
  9. EBRANTIL [Concomitant]
     Active Substance: URAPIDIL
     Indication: PRODUCT USED FOR UNKNOWN INDICATION
     Dosage: 120 MG, QD (60 MILLIGRAM, BID, TWICE DAILY (IN THE MORNING AND IN THE EVENING)
     Route: 065
  10. AMLODIPIN HEXAL [Concomitant]
     Indication: PRODUCT USED FOR UNKNOWN INDICATION
     Dosage: 10 MG, QD
     Route: 065
     Dates: start: 2018
  11. PREGABALIN. [Concomitant]
     Active Substance: PREGABALIN
     Indication: PRODUCT USED FOR UNKNOWN INDICATION
     Dosage: 150 MG,QD (TWICE DAILY (IN THE MORNING AND IN THE EVENING)
     Route: 065
  12. METOHEXAL [Concomitant]
     Active Substance: METOPROLOL
     Indication: PRODUCT USED FOR UNKNOWN INDICATION
     Dosage: 100 MG, QD (50 MILLIGRAM, BID (TWICE DAILY (IN THE MORNING AND IN THE EVENING), EACH TIME 1/2))
     Route: 065
  13. METFORMIN [Concomitant]
     Active Substance: METFORMIN HYDROCHLORIDE
     Indication: PRODUCT USED FOR UNKNOWN INDICATION
     Dosage: 2000 MG, QD (1000 MILLIGRAM, BID (TWICE DAILY (IN THE MORNING AND IN THE EVENING, EACH TIME 1/2))
     Route: 065
  14. DOXAGAMMA [Concomitant]
     Active Substance: DOXAZOSIN MESYLATE
     Dosage: UNK
     Route: 065
     Dates: start: 2018

REACTIONS (4)
  - Recalled product administered [Unknown]
  - Quality of life decreased [Unknown]
  - Fear of disease [Unknown]
  - Mental impairment [Unknown]
